FAERS Safety Report 5244910-4 (Version None)
Quarter: 2007Q1

REPORT INFORMATION
  Report Type: 
  Country: None (occurrence: None)
  Receive Date: 20061201
  Receipt Date: 20060804
  Transmission Date: 20070707
  Serious: No
  Sender: FDA-Public Use
  Company Number: 2006PV018834

PATIENT
  Age: 56 Year
  Sex: Female
  Weight: 80.2867 kg

DRUGS (5)
  1. BYETTA [Suspect]
     Indication: DIABETES MELLITUS NON-INSULIN-DEPENDENT
     Dosage: 10 MCG;BID;SC
     Route: 058
     Dates: start: 20050801
  2. ACTOS [Concomitant]
  3. NEURONTIN [Concomitant]
  4. TOPAMAX [Concomitant]
  5. LYRICA [Concomitant]

REACTIONS (2)
  - CONSTIPATION [None]
  - NAUSEA [None]
